FAERS Safety Report 4603976-2 (Version None)
Quarter: 2005Q1

REPORT INFORMATION
  Report Type: 
  Country: None (occurrence: None)
  Receive Date: 20050308
  Receipt Date: 20050222
  Transmission Date: 20050727
  Serious: Yes (Hospitalization)
  Sender: FDA-Public Use
  Company Number: RENA-11290

PATIENT
  Age: 62 Year
  Sex: Female

DRUGS (14)
  1. PHOSBLOCK [Suspect]
     Indication: HYPERPHOSPHATAEMIA
     Dosage: 0.75 G QD PO
     Route: 048
     Dates: start: 20040326, end: 20050117
  2. AMLODIPINE BESYLATE [Concomitant]
  3. FAMOTIDINE [Concomitant]
  4. VALSARTAN [Concomitant]
  5. LEVOTHYROXINE SODIUM [Concomitant]
  6. MECOBALAMIN [Concomitant]
  7. NEUROTROPINE [Concomitant]
  8. FLURBIPROFEN [Concomitant]
  9. UREA [Concomitant]
  10. MOMETASONE FUROATE [Concomitant]
  11. LOXOPROFEN SODIUM [Concomitant]
  12. SENNOSIDE [Concomitant]
  13. EPOETIN BETA (GENETICAL RECOMBINATION) [Concomitant]
  14. DICLOFENAC SODIUM [Concomitant]

REACTIONS (2)
  - GASTROENTERITIS VIRAL [None]
  - HAEMODIALYSIS [None]
